FAERS Safety Report 21261116 (Version 1)
Quarter: 2022Q3

REPORT INFORMATION
  Report Type: Spontaneous
  Country: FR (occurrence: FR)
  Receive Date: 20220826
  Receipt Date: 20220826
  Transmission Date: 20221026
  Serious: Yes (Hospitalization, Other)
  Sender: FDA-Public Use
  Company Number: None

PATIENT
  Age: 55 Year
  Sex: Female
  Weight: 47 kg

DRUGS (4)
  1. OXALIPLATIN [Suspect]
     Active Substance: OXALIPLATIN
     Indication: Rectal cancer
     Dosage: ROA-20045000
     Route: 042
     Dates: start: 20210811, end: 20210811
  2. LEUCOVORIN CALCIUM [Suspect]
     Active Substance: LEUCOVORIN CALCIUM
     Indication: Rectal cancer
     Dosage: ROA-20045000
     Route: 042
     Dates: start: 20210811, end: 20210811
  3. ONDANSETRON [Concomitant]
     Active Substance: ONDANSETRON
     Indication: Rectal cancer
     Dosage: ROA-20045000
     Route: 042
     Dates: start: 20210811, end: 20210811
  4. PANITUMUMAB [Concomitant]
     Active Substance: PANITUMUMAB
     Indication: Rectal cancer
     Dosage: ROA-20045000
     Route: 042
     Dates: start: 20210811, end: 20210811

REACTIONS (1)
  - Anaphylactic shock [Recovered/Resolved]

NARRATIVE: CASE EVENT DATE: 20210811
